FAERS Safety Report 9164550 (Version 1)
Quarter: 2013Q1

REPORT INFORMATION
  Report Type: Spontaneous
  Country: GR (occurrence: None)
  Receive Date: 20130226
  Receipt Date: 20130226
  Transmission Date: 20140127
  Serious: Yes (Hospitalization)
  Sender: FDA-Public Use
  Company Number: SYM-2013-00853

PATIENT
  Sex: 0

DRUGS (6)
  1. 5-FU [Suspect]
     Indication: COLORECTAL CANCER METASTATIC
     Dosage: 400 MG/M2, INTRAVENOUS (NOT OTHERWISE SPECIFIED)
     Route: 042
  2. OXALIPLATIN (OXALIPLATIN) (SOLUTION FOR INFUSION) (OXALIPLATION) [Concomitant]
     Dosage: 65 MG/M2, INTRAVENOUS (NOT OTHERWISE SPECIFIED)
     Route: 042
  3. CETUXIMAB [Suspect]
  4. IRINOTECAN [Suspect]
     Dosage: 150 MG/M2, INTRAVANOUS (NOT OTHERWISE SPECIFIED)
     Route: 042
  5. LEUCOVORIN [Suspect]
     Dosage: 200 MG/M2, INTRAVENOUS (NOT OTHERWISE SPECIFIED)
     Route: 042
  6. ANTIHISTAMINES (ANTIHISTAMINES) [Concomitant]

REACTIONS (1)
  - Diarrhoea [None]
